FAERS Safety Report 22881751 (Version 2)
Quarter: 2024Q2

REPORT INFORMATION
  Report Type: Report from Study
  Country: US (occurrence: US)
  Receive Date: 20230830
  Receipt Date: 20240506
  Transmission Date: 20240716
  Serious: No
  Sender: FDA-Public Use
  Company Number: US-002147023-NVSC2023US187975

PATIENT
  Sex: Female

DRUGS (3)
  1. ILARIS [Suspect]
     Active Substance: CANAKINUMAB
     Indication: Pyrexia
     Dosage: 150 MG (ONCE EVERY 8 WEEKS)
     Route: 058
     Dates: start: 20230628
  2. ILARIS [Suspect]
     Active Substance: CANAKINUMAB
     Dosage: 150 MG, OTHER (EVERY 6 WEEKS)
     Route: 058
  3. ILARIS [Suspect]
     Active Substance: CANAKINUMAB
     Dosage: 150 MG, OTHER (ONCE EVERY 6 WEEKS)
     Route: 058

REACTIONS (6)
  - Illness [Unknown]
  - Vomiting [Unknown]
  - Device mechanical issue [Unknown]
  - Pain [Unknown]
  - Device malfunction [Unknown]
  - Device leakage [Unknown]
